FAERS Safety Report 16435183 (Version 1)
Quarter: 2019Q2

REPORT INFORMATION
  Report Type: Spontaneous
  Country: US (occurrence: US)
  Receive Date: 20190614
  Receipt Date: 20190614
  Transmission Date: 20190711
  Serious: Yes (Other)
  Sender: FDA-Public Use
  Company Number: US-PFIZER INC-2019248161

PATIENT
  Age: 34 Year
  Sex: Female

DRUGS (1)
  1. DIPHENHYDRAMINE HCL [Suspect]
     Active Substance: DIPHENHYDRAMINE HYDROCHLORIDE
     Dosage: UNK (SEVEN BOTTLES OF DIPHENHYDRAMINE, TWO OF WHICH WERE EMPTY)

REACTIONS (3)
  - Cardiac arrest [Recovering/Resolving]
  - Overdose [Unknown]
  - Seizure [Recovering/Resolving]
